FAERS Safety Report 24190138 (Version 2)
Quarter: 2024Q3

REPORT INFORMATION
  Report Type: Spontaneous
  Country: IT (occurrence: IT)
  Receive Date: 20240808
  Receipt Date: 20240822
  Transmission Date: 20241017
  Serious: Yes (Hospitalization)
  Sender: TEVA
  Company Number: IT-TEVA-VS-3228691

PATIENT
  Age: 28 Year
  Sex: Female

DRUGS (3)
  1. MONTELUKAST [Suspect]
     Active Substance: MONTELUKAST SODIUM
     Indication: Asthma
     Route: 065
  2. BUDESONIDE\FORMOTEROL [Suspect]
     Active Substance: BUDESONIDE\FORMOTEROL
     Indication: Asthma
     Route: 065
  3. METHYLPREDNISOLONE [Suspect]
     Active Substance: METHYLPREDNISOLONE
     Indication: Asthma
     Route: 048

REACTIONS (6)
  - Steroid diabetes [Recovering/Resolving]
  - Hyperadrenocorticism [Recovering/Resolving]
  - Hepatic steatosis [Unknown]
  - Adrenal insufficiency [Unknown]
  - Osteoporosis [Recovering/Resolving]
  - Drug ineffective [Unknown]
